FAERS Safety Report 8371302-1 (Version None)
Quarter: 2012Q2

REPORT INFORMATION
  Report Type: 
  Country: None (occurrence: None)
  Receive Date: 20120517
  Receipt Date: 20120502
  Transmission Date: 20120825
  Serious: Yes (Death, Other)
  Sender: FDA-Public Use
  Company Number: 20120282

PATIENT
  Sex: Female

DRUGS (1)
  1. EPINEPHRINE [Suspect]
     Indication: MYOCARDIAL INFARCTION
     Dates: start: 20030303, end: 20030303

REACTIONS (3)
  - RESPIRATORY ARREST [None]
  - EPISTAXIS [None]
  - THERAPEUTIC PRODUCT INEFFECTIVE [None]
